FAERS Safety Report 6813671-7 (Version None)
Quarter: 2010Q3

REPORT INFORMATION
  Report Type: 
  Country: None (occurrence: None)
  Receive Date: 20100701
  Receipt Date: 20100625
  Transmission Date: 20110219
  Serious: Yes (Death, Life-Threatening, Hospitalization)
  Sender: FDA-Public Use
  Company Number: DE-ELI_LILLY_AND_COMPANY-DE201006007020

PATIENT
  Age: 82 Year
  Sex: Male

DRUGS (1)
  1. ALIMTA [Suspect]
     Indication: PLEURAL MESOTHELIOMA
     Dosage: 920 MG, UNK
     Route: 042

REACTIONS (5)
  - DEATH [None]
  - HEPATIC FAILURE [None]
  - LEUKOPENIA [None]
  - PNEUMONIA [None]
  - RENAL FAILURE [None]
